FAERS Safety Report 11799700 (Version 2)
Quarter: 2015Q4

REPORT INFORMATION
  Report Type: Report from Study
  Country: US (occurrence: US)
  Receive Date: 20151203
  Receipt Date: 20151215
  Transmission Date: 20160305
  Serious: Yes (Death, Hospitalization)
  Sender: FDA-Public Use
  Company Number: US-ACTELION-A-NJ2015-128116

PATIENT
  Age: 77 Year
  Sex: Female

DRUGS (1)
  1. MACITENTAN [Suspect]
     Active Substance: MACITENTAN
     Indication: PULMONARY HYPERTENSION
     Dosage: 10 MG, QD
     Route: 048
     Dates: start: 20140321, end: 20151123

REACTIONS (7)
  - Atrial fibrillation [Unknown]
  - Dialysis [Unknown]
  - Hypotension [Unknown]
  - Diabetes mellitus [Unknown]
  - Renal failure [Fatal]
  - Infection [Fatal]
  - Cellulitis [Unknown]
